FAERS Safety Report 6940923-2 (Version None)
Quarter: 2010Q3

REPORT INFORMATION
  Report Type: 
  Country: None (occurrence: None)
  Receive Date: 20100825
  Receipt Date: 20100817
  Transmission Date: 20110219
  Serious: Yes (Hospitalization)
  Sender: FDA-Public Use
  Company Number: A0789981A

PATIENT
  Age: 45 Year
  Sex: Male
  Weight: 133.2 kg

DRUGS (8)
  1. AVANDIA [Suspect]
     Dosage: 8MG PER DAY
     Route: 048
     Dates: start: 20050706
  2. PROAIR HFA [Concomitant]
  3. INSULIN [Concomitant]
  4. LOPID [Concomitant]
  5. ACIPHEX [Concomitant]
  6. LISINOPRIL [Concomitant]
  7. VYTORIN [Concomitant]
  8. GLUCOPHAGE [Concomitant]

REACTIONS (5)
  - CARDIAC DISORDER [None]
  - CARDIAC FAILURE CONGESTIVE [None]
  - CARDIOVASCULAR DISORDER [None]
  - DEPRESSION [None]
  - MYOCARDIAL INFARCTION [None]
